FAERS Safety Report 6050316-0 (Version None)
Quarter: 2009Q1

REPORT INFORMATION
  Report Type: 
  Country: None (occurrence: None)
  Receive Date: 20090126
  Receipt Date: 20090115
  Transmission Date: 20090719
  Serious: Yes (Other)
  Sender: FDA-Public Use
  Company Number: GB-AMGEN-US325071

PATIENT
  Sex: Female
  Weight: 64 kg

DRUGS (7)
  1. ENBREL [Suspect]
     Indication: RHEUMATOID ARTHRITIS
     Route: 058
     Dates: start: 20020128
  2. LANSOPRAZOLE [Concomitant]
     Route: 048
     Dates: start: 20081201
  3. SIMVASTATIN [Concomitant]
     Dosage: 40 MG (FREQUENCY UNKNOWN)
     Route: 048
     Dates: start: 20061001
  4. ALENDRONIC ACID [Concomitant]
     Route: 048
     Dates: start: 20081201
  5. METHOTREXATE [Concomitant]
     Indication: RHEUMATOID ARTHRITIS
     Route: 048
     Dates: start: 19940905
  6. METHOTREXATE [Concomitant]
     Route: 048
     Dates: start: 20080801
  7. FOLIC ACID [Concomitant]
     Route: 048
     Dates: start: 19940905

REACTIONS (3)
  - INTERMEDIATE UVEITIS [None]
  - IRIDOCYCLITIS [None]
  - VASCULITIS [None]
